FAERS Safety Report 13153878 (Version 1)
Quarter: 2017Q1

REPORT INFORMATION
  Report Type: Spontaneous
  Country: TR (occurrence: TR)
  Receive Date: 20170126
  Receipt Date: 20170126
  Transmission Date: 20170428
  Serious: Yes (Other)
  Sender: FDA-Public Use
  Company Number: TR-ENDO PHARMACEUTICALS INC-2017-000294

PATIENT

DRUGS (1)
  1. AVEED [Suspect]
     Active Substance: TESTOSTERONE UNDECANOATE
     Indication: TRANSGENDER OPERATION
     Dosage: 1000 MG, APPLYING AT 84 DAYS I
     Route: 065
     Dates: start: 201608

REACTIONS (9)
  - Major depression [Unknown]
  - Product supply issue [Unknown]
  - Tension [Unknown]
  - Dysphonia [Unknown]
  - Off label use [Unknown]
  - Dysphonia [Recovered/Resolved]
  - Hunger [Unknown]
  - Weight increased [Unknown]
  - Irritability [Unknown]
